FAERS Safety Report 11629477 (Version 2)
Quarter: 2015Q4

REPORT INFORMATION
  Report Type: Spontaneous
  Country: CH (occurrence: CH)
  Receive Date: 20151014
  Receipt Date: 20151016
  Transmission Date: 20160304
  Serious: Yes (Hospitalization)
  Sender: FDA-Public Use
  Company Number: CH-ASTRAZENECA-2015SE96294

PATIENT
  Age: 15869 Day
  Sex: Male

DRUGS (8)
  1. DISTRANEURINE [Suspect]
     Active Substance: CLOMETHIAZOLE
     Route: 048
  2. PANTOZOL [Concomitant]
     Active Substance: PANTOPRAZOLE SODIUM
     Route: 048
  3. RIVOTRIL [Suspect]
     Active Substance: CLONAZEPAM
     Dosage: ROCHE PHARMA 18 MG DAILY
     Route: 048
     Dates: start: 20140724, end: 20140724
  4. IMOVANE [Suspect]
     Active Substance: ZOPICLONE
     Dosage: AVENTIS PHARMA, 7.5 MG DAILY
     Route: 048
  5. COVERSUM [Concomitant]
     Active Substance: PERINDOPRIL
     Route: 048
  6. SEROQUEL [Suspect]
     Active Substance: QUETIAPINE FUMARATE
     Route: 048
  7. KETALGIN NOS [Concomitant]
     Active Substance: KETOROLAC TROMETHAMINE OR METHADONE
     Route: 048
  8. SEROQUEL [Suspect]
     Active Substance: QUETIAPINE FUMARATE
     Route: 048

REACTIONS (3)
  - Drug abuse [Recovered/Resolved]
  - Altered state of consciousness [Recovered/Resolved]
  - Amnesia [Unknown]

NARRATIVE: CASE EVENT DATE: 20140724
